FAERS Safety Report 8866133 (Version 1)
Quarter: 2012Q4

REPORT INFORMATION
  Report Type: 
  Country: DE (occurrence: DE)
  Receive Date: 20121025
  Receipt Date: 20121025
  Transmission Date: 20130627
  Serious: Yes (Other)
  Sender: FDA-Public Use
  Company Number: DE-ASTRAZENECA-2012SE77517

PATIENT
  Sex: Female
  Weight: 75 kg

DRUGS (2)
  1. ATACAND PLUS [Suspect]
     Indication: HYPERTENSION
     Route: 048
     Dates: end: 2002
  2. ATACAND PLUS [Suspect]
     Indication: HYPERTENSION
     Route: 048
     Dates: start: 2002

REACTIONS (1)
  - Androgenetic alopecia [Not Recovered/Not Resolved]
